FAERS Safety Report 10084985 (Version 1)
Quarter: 2014Q2

REPORT INFORMATION
  Report Type: Spontaneous
  Country: FR (occurrence: FR)
  Receive Date: 20140417
  Receipt Date: 20140417
  Transmission Date: 20141212
  Serious: Yes (Hospitalization)
  Sender: FDA-Public Use
  Company Number: FR-ABBVIE-14P-056-1226890-00

PATIENT
  Age: 82 Year
  Sex: Female

DRUGS (9)
  1. DEPAKINE [Suspect]
     Indication: PRODUCT USED FOR UNKNOWN INDICATION
  2. ZOLPIDEM TARTRATE [Suspect]
     Indication: PRODUCT USED FOR UNKNOWN INDICATION
     Dates: end: 20140317
  3. RISPERIDONE [Suspect]
     Indication: PRODUCT USED FOR UNKNOWN INDICATION
  4. SERESTA [Suspect]
     Indication: PRODUCT USED FOR UNKNOWN INDICATION
  5. DAFALGAN [Concomitant]
     Indication: PRODUCT USED FOR UNKNOWN INDICATION
  6. IRBESARTAN [Concomitant]
     Indication: PRODUCT USED FOR UNKNOWN INDICATION
  7. ACETYLSALICYLATE LYSINE [Concomitant]
     Indication: PRODUCT USED FOR UNKNOWN INDICATION
     Dates: end: 20140317
  8. LANTUS [Concomitant]
     Indication: PRODUCT USED FOR UNKNOWN INDICATION
  9. TAHOR [Concomitant]
     Indication: PRODUCT USED FOR UNKNOWN INDICATION

REACTIONS (2)
  - Fall [Recovered/Resolved]
  - Cerebral haematoma [Recovered/Resolved]
